FAERS Safety Report 6196388-4 (Version None)
Quarter: 2009Q2

REPORT INFORMATION
  Report Type: 
  Country: None (occurrence: None)
  Receive Date: 20090518
  Receipt Date: 20090518
  Transmission Date: 20091009
  Serious: Yes (Hospitalization)
  Sender: FDA-Public Use
  Company Number: None

PATIENT
  Sex: Female
  Weight: 61.3 kg

DRUGS (2)
  1. CARBOPLATIN [Suspect]
     Dosage: 250 MG
  2. TAXOL [Suspect]
     Dosage: 70 MG

REACTIONS (7)
  - CHILLS [None]
  - COUGH [None]
  - FEBRILE NEUTROPENIA [None]
  - HAEMOPTYSIS [None]
  - HEART RATE INCREASED [None]
  - OEDEMA PERIPHERAL [None]
  - PYREXIA [None]
